FAERS Safety Report 8391324-4 (Version None)
Quarter: 2012Q2

REPORT INFORMATION
  Report Type: 
  Country: None (occurrence: None)
  Receive Date: 20120529
  Receipt Date: 20120515
  Transmission Date: 20120825
  Serious: Yes (Hospitalization)
  Sender: FDA-Public Use
  Company Number: GB-JNJFOC-20120516165

PATIENT
  Sex: Female

DRUGS (2)
  1. PALIPERIDONE [Suspect]
     Route: 030
     Dates: start: 20120425
  2. PALIPERIDONE [Suspect]
     Indication: ILL-DEFINED DISORDER
     Route: 030
     Dates: start: 20120502

REACTIONS (3)
  - INJECTION SITE SWELLING [None]
  - PSYCHOTIC DISORDER [None]
  - INJECTION SITE PAIN [None]
